FAERS Safety Report 4978353-5 (Version None)
Quarter: 2006Q2

REPORT INFORMATION
  Report Type: 
  Country: None (occurrence: None)
  Receive Date: 20060414
  Receipt Date: 20060329
  Transmission Date: 20061013
  Serious: Yes (Hospitalization)
  Sender: FDA-Public Use
  Company Number: GBR-2006-0002194

PATIENT
  Age: 38 Year
  Sex: Male

DRUGS (10)
  1. OXYCONTIN [Suspect]
     Dosage: ORAL
     Route: 048
  2. TAXOTERE [Suspect]
     Dosage: INTRAVENOUS
     Route: 042
     Dates: start: 20060223
  3. AMITRIPTYLINE HCL [Suspect]
  4. OMEPRAZOLE [Suspect]
  5. ZOFRAN [Suspect]
  6. ACETAMINOPHEN [Suspect]
  7. SOLU-MEDROL [Concomitant]
  8. ZOLPIDEM TARTRATE [Concomitant]
  9. FORLAX (MACROGOL) [Concomitant]
  10. CLONAZEPAM [Concomitant]

REACTIONS (13)
  - ADVERSE DRUG REACTION [None]
  - BODY TEMPERATURE DECREASED [None]
  - CHILLS [None]
  - FEELING HOT [None]
  - HEART RATE INCREASED [None]
  - HYPERHIDROSIS [None]
  - OXYGEN SATURATION DECREASED [None]
  - PALLOR [None]
  - PO2 DECREASED [None]
  - PULMONARY EMBOLISM [None]
  - SEPSIS [None]
  - SYSTEMIC INFLAMMATORY RESPONSE SYNDROME [None]
  - TUMOUR NECROSIS [None]
